FAERS Safety Report 11071625 (Version 1)
Quarter: 2015Q2

REPORT INFORMATION
  Report Type: Spontaneous
  Country: FR (occurrence: None)
  Receive Date: 20150424
  Receipt Date: 20150424
  Transmission Date: 20150821
  Serious: Yes (Other)
  Sender: FDA-Public Use
  Company Number: FR-ZYDUS-007689

PATIENT
  Age: 38 Year
  Sex: Male

DRUGS (2)
  1. AZATHIOPRINE (AZATHIOPRINE) [Suspect]
     Active Substance: AZATHIOPRINE
     Indication: PRODUCT USED FOR UNKNOWN INDICATION
  2. CORTICOSTEROIDS [Suspect]
     Active Substance: CORTICOSTEROID NOS
     Indication: HENOCH-SCHONLEIN PURPURA

REACTIONS (2)
  - Immune reconstitution inflammatory syndrome [None]
  - Whipple^s disease [None]
